FAERS Safety Report 6355510-7 (Version None)
Quarter: 2009Q3

REPORT INFORMATION
  Report Type: 
  Country: None (occurrence: None)
  Receive Date: 20090910
  Receipt Date: 20090826
  Transmission Date: 20100115
  Serious: Yes (Hospitalization)
  Sender: FDA-Public Use
  Company Number: PIR# 0909005A

PATIENT
  Age: 78 Year
  Sex: Female

DRUGS (1)
  1. CEFAZOLIN [Suspect]

REACTIONS (6)
  - ANAESTHETIC COMPLICATION [None]
  - BRAIN SCAN ABNORMAL [None]
  - CONVULSION [None]
  - HEADACHE [None]
  - LOSS OF CONSCIOUSNESS [None]
  - STUPOR [None]
